FAERS Safety Report 8552688-1 (Version None)
Quarter: 2012Q3

REPORT INFORMATION
  Report Type: 
  Country: None (occurrence: None)
  Receive Date: 20120715
  Receipt Date: 20120715
  Transmission Date: 20120928
  Serious: Yes (Other)
  Sender: FDA-Public Use
  Company Number: None

PATIENT
  Age: 70 Year
  Sex: Female
  Weight: 73.6 kg

DRUGS (1)
  1. ERY-TAB EC [Suspect]
     Indication: PERTUSSIS
     Dosage: 500 MG 4 TIMES/DAY ORAL
     Route: 048
     Dates: end: 20120714

REACTIONS (1)
  - ABDOMINAL PAIN UPPER [None]
